FAERS Safety Report 8334221 (Version 2)
Quarter: 2013Q2

REPORT INFORMATION
  Report Type: Spontaneous
  Country: US (occurrence: None)
  Receive Date: 20111130
  Receipt Date: 20120731
  Transmission Date: 20140414
  Serious: Yes (Other)
  Sender: FDA-Public Use
  Company Number: US201107004459

PATIENT
  Age: 57 Year
  Sex: Female

DRUGS (3)
  1. BYETTA [Suspect]
     Dosage: UNK
     Dates: start: 20100811, end: 20100924
  2. LANTUS (INSULIN GLARGINE) [Concomitant]
  3. GLUCOPHAGE (METFORMIN HYDROCHLORIDE) [Concomitant]

REACTIONS (1)
  - PANCREATITIS [None]
